FAERS Safety Report 8478542-1 (Version None)
Quarter: 2012Q2

REPORT INFORMATION
  Report Type: 
  Country: None (occurrence: None)
  Receive Date: 20120629
  Receipt Date: 20120620
  Transmission Date: 20120825
  Serious: Yes (Other)
  Sender: FDA-Public Use
  Company Number: BR-JNJFOC-20120607041

PATIENT
  Age: 26 Year
  Sex: Female

DRUGS (3)
  1. INFLIXIMAB, RECOMBINANT [Suspect]
     Indication: SPONDYLITIS
     Route: 042
     Dates: start: 20060801
  2. INFLIXIMAB, RECOMBINANT [Suspect]
     Route: 042
     Dates: start: 20070101, end: 20080401
  3. INFLIXIMAB, RECOMBINANT [Suspect]
     Dosage: RESTARTED
     Route: 042

REACTIONS (2)
  - THYROID CANCER [None]
  - ANTINUCLEAR ANTIBODY POSITIVE [None]
